FAERS Safety Report 4773561-0 (Version None)
Quarter: 2005Q3

REPORT INFORMATION
  Report Type: 
  Country: None (occurrence: None)
  Receive Date: 20050920
  Receipt Date: 20050421
  Transmission Date: 20060218
  Serious: No
  Sender: FDA-Public Use
  Company Number: US-BRISTOL-MYERS SQUIBB COMPANY-12942090

PATIENT
  Sex: Female

DRUGS (1)
  1. BUSPAR [Suspect]
     Indication: BIPOLAR DISORDER
     Dates: start: 20000301

REACTIONS (1)
  - CRYING [None]
